FAERS Safety Report 8078064-6 (Version None)
Quarter: 2012Q1

REPORT INFORMATION
  Report Type: 
  Country: None (occurrence: None)
  Receive Date: 20120127
  Receipt Date: 20110107
  Transmission Date: 20120608
  Serious: No
  Sender: FDA-Public Use
  Company Number: US-ABBOTT-11P-163-0696061-00

PATIENT
  Sex: Male
  Weight: 74.91 kg

DRUGS (1)
  1. HUMIRA [Suspect]
     Indication: SJOGREN'S SYNDROME
     Dosage: FIRST DOSE
     Route: 058
     Dates: start: 20101205

REACTIONS (5)
  - RESPIRATORY TRACT CONGESTION [None]
  - COUGH [None]
  - NASAL CONGESTION [None]
  - DRUG DOSE OMISSION [None]
  - FATIGUE [None]
